FAERS Safety Report 7202486-6 (Version None)
Quarter: 2010Q4

REPORT INFORMATION
  Report Type: 
  Country: None (occurrence: None)
  Receive Date: 20101229
  Receipt Date: 20101215
  Transmission Date: 20110411
  Serious: Yes (Other)
  Sender: FDA-Public Use
  Company Number: B0691231A

PATIENT
  Age: 54 Year
  Sex: Male

DRUGS (2)
  1. ADEFOVIR DIPIVOXIL KIT [Suspect]
     Dosage: 10MG PER DAY
     Route: 048
     Dates: start: 20040101
  2. LAMIVUDINE [Suspect]
     Route: 065
     Dates: start: 19980101, end: 20040101

REACTIONS (3)
  - RENAL INJURY [None]
  - TRANSAMINASES INCREASED [None]
  - VIRAL MUTATION IDENTIFIED [None]
